FAERS Safety Report 6977496-4 (Version None)
Quarter: 2010Q3

REPORT INFORMATION
  Report Type: 
  Country: None (occurrence: None)
  Receive Date: 20100910
  Receipt Date: 20100902
  Transmission Date: 20110219
  Serious: Yes (Hospitalization)
  Sender: FDA-Public Use
  Company Number: DE-ABBOTT-10P-062-0668666-00

PATIENT
  Sex: Female
  Weight: 70.6 kg

DRUGS (2)
  1. HUMIRA [Suspect]
     Indication: MIXED CONNECTIVE TISSUE DISEASE
     Dosage: 80 MG LOADING DOSE
     Route: 058
     Dates: start: 20100817, end: 20100817
  2. HUMIRA [Suspect]
     Route: 058

REACTIONS (4)
  - CHILLS [None]
  - COUGH [None]
  - INFLAMMATORY MARKER INCREASED [None]
  - PYREXIA [None]
